FAERS Safety Report 4316398-9 (Version None)
Quarter: 2004Q1

REPORT INFORMATION
  Report Type: 
  Country: None (occurrence: None)
  Receive Date: 20040312
  Receipt Date: 20040302
  Transmission Date: 20041129
  Serious: Yes (Hospitalization)
  Sender: FDA-Public Use
  Company Number: PHHO2004IT03252

PATIENT
  Age: 31 Year
  Sex: Female
  Weight: 43 kg

DRUGS (2)
  1. ERL080 [Suspect]
     Indication: RENAL TRANSPLANT
     Dosage: 720 MG, BID
     Route: 048
     Dates: start: 20030715, end: 20030926
  2. ERL080 [Suspect]
     Dosage: 360 MG, BID
     Route: 048
     Dates: start: 20031006

REACTIONS (2)
  - BONE MARROW DEPRESSION [None]
  - PANCYTOPENIA [None]
